FAERS Safety Report 24374303 (Version 3)
Quarter: 2024Q4

REPORT INFORMATION
  Report Type: Spontaneous
  Country: ES (occurrence: ES)
  Receive Date: 20240927
  Receipt Date: 20241126
  Transmission Date: 20250115
  Serious: Yes (Other)
  Sender: APELLIS PHARMACEUTICALS
  Company Number: ES-BIOVITRUM-2024-ES-012365

PATIENT

DRUGS (3)
  1. PEGCETACOPLAN [Suspect]
     Active Substance: PEGCETACOPLAN
     Indication: Paroxysmal nocturnal haemoglobinuria
     Dosage: MONDAYS AND THURSDAY?1080 MG SUBCUTANEOUSLY
     Route: 058
     Dates: end: 20240731
  2. PEGCETACOPLAN [Suspect]
     Active Substance: PEGCETACOPLAN
     Dosage: EVERY 72 HOURS?1080 MG SUBCUTANEOUSLY
     Route: 058
     Dates: start: 20240731
  3. MICARDIS [Suspect]
     Active Substance: TELMISARTAN
     Indication: Product used for unknown indication
     Dates: end: 20240312

REACTIONS (1)
  - Renal failure [Not Recovered/Not Resolved]

NARRATIVE: CASE EVENT DATE: 20240401
